FAERS Safety Report 5460646-9 (Version None)
Quarter: 2007Q3

REPORT INFORMATION
  Report Type: 
  Country: None (occurrence: None)
  Receive Date: 20070919
  Receipt Date: 20070912
  Transmission Date: 20080115
  Serious: Yes (Death, Hospitalization)
  Sender: FDA-Public Use
  Company Number: AR-PFIZER INC-2007076816

PATIENT
  Sex: Female

DRUGS (4)
  1. BEXTRA [Suspect]
     Indication: OSTEOARTHRITIS
     Dates: start: 20050101, end: 20050421
  2. BEXTRA [Suspect]
  3. PARECOXIB SODIUM [Suspect]
     Indication: OSTEOARTHRITIS
     Dates: start: 20050101, end: 20050421
  4. PARECOXIB SODIUM [Suspect]

REACTIONS (3)
  - ANXIETY [None]
  - INSOMNIA [None]
  - TOXIC EPIDERMAL NECROLYSIS [None]
